FAERS Safety Report 5358919-3 (Version None)
Quarter: 2007Q2

REPORT INFORMATION
  Report Type: 
  Country: None (occurrence: None)
  Receive Date: 20070615
  Receipt Date: 20070611
  Transmission Date: 20071010
  Serious: Yes (Hospitalization)
  Sender: FDA-Public Use
  Company Number: B0474254A

PATIENT
  Sex: Female

DRUGS (6)
  1. RETROVIR [Suspect]
     Indication: ANTIVIRAL PROPHYLAXIS
     Dosage: .2ML PER DAY
     Route: 042
     Dates: start: 20070411
  2. CAFFEINE [Suspect]
     Indication: RESPIRATORY DISTRESS
     Dosage: .2ML PER DAY
     Route: 042
     Dates: start: 20070411
  3. COMBIVIR [Concomitant]
     Indication: HIV INFECTION
     Dates: start: 20070316
  4. KALETRA [Concomitant]
     Indication: HIV INFECTION
     Dates: start: 20070316
  5. PHOTOTHERAPY [Concomitant]
     Indication: JAUNDICE
     Dates: start: 20070412, end: 20070421
  6. INSULIN [Concomitant]
     Route: 042
     Dates: start: 20070412, end: 20070427

REACTIONS (3)
  - HYPERGLYCAEMIA [None]
  - JAUNDICE [None]
  - NORMOCHROMIC NORMOCYTIC ANAEMIA [None]
